FAERS Safety Report 16358202 (Version 1)
Quarter: 2019Q2

REPORT INFORMATION
  Report Type: Spontaneous
  Country: RO (occurrence: RO)
  Receive Date: 20190527
  Receipt Date: 20190527
  Transmission Date: 20190711
  Serious: Yes (Death, Hospitalization, Other)
  Sender: FDA-Public Use
  Company Number: RO-ALLERGAN-1921829US

PATIENT
  Sex: Male

DRUGS (1)
  1. MESALAZINE UNK [Suspect]
     Active Substance: MESALAMINE
     Indication: CROHN^S DISEASE
     Dosage: 1.2 G, QD
     Route: 065

REACTIONS (5)
  - Crohn^s disease [Fatal]
  - Pneumonia [Fatal]
  - Cytomegalovirus infection [Fatal]
  - Haemophagocytic lymphohistiocytosis [Fatal]
  - Bronchiectasis [Unknown]
